FAERS Safety Report 23915591 (Version 2)
Quarter: 2024Q2

REPORT INFORMATION
  Report Type: Report from Study
  Country: CA (occurrence: CA)
  Receive Date: 20240529
  Receipt Date: 20240607
  Transmission Date: 20240716
  Serious: Yes (Other)
  Sender: FDA-Public Use
  Company Number: CA-JNJFOC-20240573979

PATIENT
  Sex: Male

DRUGS (2)
  1. REMICADE [Suspect]
     Active Substance: INFLIXIMAB
     Indication: Crohn^s disease
     Route: 041
  2. HYDROCORTISONE [Concomitant]
     Active Substance: HYDROCORTISONE

REACTIONS (3)
  - Infusion related reaction [Recovered/Resolved]
  - Urticaria [Recovered/Resolved]
  - Throat irritation [Recovered/Resolved]
